FAERS Safety Report 7227098-X (Version None)
Quarter: 2011Q1

REPORT INFORMATION
  Report Type: 
  Country: None (occurrence: None)
  Receive Date: 20110114
  Receipt Date: 20110107
  Transmission Date: 20110831
  Serious: Yes (Hospitalization)
  Sender: FDA-Public Use
  Company Number: US-SANOFI-AVENTIS-2011SA001978

PATIENT
  Age: 62 Year
  Sex: Female

DRUGS (7)
  1. METFORMIN HCL [Concomitant]
  2. LANTUS [Suspect]
     Indication: TYPE 2 DIABETES MELLITUS
     Dosage: DOSE:40 UNIT(S)
     Route: 058
     Dates: start: 20070101
  3. GLIMEPIRIDE [Concomitant]
  4. ANTIBIOTICS [Concomitant]
     Dates: start: 20100801
  5. HUMALOG [Concomitant]
  6. OPTICLICK [Suspect]
     Dates: start: 20070101
  7. PREDNISONE [Concomitant]

REACTIONS (3)
  - DYSPNOEA [None]
  - BLOOD GLUCOSE DECREASED [None]
  - HYPERGLYCAEMIA [None]
